FAERS Safety Report 6842431 (Version 6)
Quarter: 2015Q2

REPORT INFORMATION
  Report Type: Spontaneous
  Country: US (occurrence: US)
  Receive Date: 20081211
  Receipt Date: 20150422
  Transmission Date: 20150821
  Serious: Yes (Other)
  Sender: FDA-Public Use
  Company Number: US-MERCK-0711USA04228

PATIENT
  Sex: Male
  Weight: 93.89 kg

DRUGS (8)
  1. PROPECIA [Suspect]
     Active Substance: FINASTERIDE
     Indication: ALOPECIA
     Dosage: 1 MG, QD
     Route: 048
     Dates: start: 200505, end: 20070527
  2. PROPECIA [Suspect]
     Active Substance: FINASTERIDE
     Indication: ANDROGENETIC ALOPECIA
  3. PROSCAR [Suspect]
     Active Substance: FINASTERIDE
     Dosage: UNK
     Route: 048
     Dates: start: 200703, end: 200707
  4. ACYCLOVIR. [Concomitant]
     Active Substance: ACYCLOVIR
     Indication: HERPES VIRUS INFECTION
     Dosage: 400 MG, UNK
     Dates: start: 200308, end: 200902
  5. PROSCAR [Suspect]
     Active Substance: FINASTERIDE
     Indication: ALOPECIA
     Dosage: 5 MG, UNK
     Route: 048
     Dates: start: 2005
  6. PROSCAR [Suspect]
     Active Substance: FINASTERIDE
     Dosage: 1/4 TABLET, QD
     Route: 048
     Dates: start: 20051017, end: 20060530
  7. FINASTERIDE. [Suspect]
     Active Substance: FINASTERIDE
     Indication: ALOPECIA
     Dosage: 5 MG, 1/4 TABLET, QD
     Dates: start: 20060825, end: 20070416
  8. FINASTERIDE. [Suspect]
     Active Substance: FINASTERIDE
     Indication: ALOPECIA
     Dosage: 1/4 TABLET, QD
     Route: 048
     Dates: start: 2006, end: 2007

REACTIONS (43)
  - Paranoia [Unknown]
  - Wrong technique in drug usage process [Unknown]
  - Palpitations [Not Recovered/Not Resolved]
  - Hyperhidrosis [Unknown]
  - Brain injury [Unknown]
  - Muscle atrophy [Not Recovered/Not Resolved]
  - Sexually transmitted disease [Unknown]
  - Hypogonadism [Unknown]
  - Libido decreased [Not Recovered/Not Resolved]
  - Ejaculation failure [Unknown]
  - Suicidal ideation [Unknown]
  - Blood testosterone decreased [Not Recovered/Not Resolved]
  - Hypertension [Not Recovered/Not Resolved]
  - Peyronie^s disease [Unknown]
  - Temperature intolerance [Unknown]
  - Confusional state [Unknown]
  - Chest pain [Unknown]
  - Semen analysis abnormal [Unknown]
  - Abdominal distension [Unknown]
  - Penis disorder [Unknown]
  - Constipation [Unknown]
  - Disorientation [Unknown]
  - Eructation [Unknown]
  - Ejaculation disorder [Unknown]
  - Loss of libido [Unknown]
  - Drug intolerance [Unknown]
  - Vascular insufficiency [Unknown]
  - Fatigue [Not Recovered/Not Resolved]
  - Insomnia [Not Recovered/Not Resolved]
  - Dyspnoea [Not Recovered/Not Resolved]
  - Anaphylactic reaction [Unknown]
  - Hyperventilation [Unknown]
  - Erectile dysfunction [Not Recovered/Not Resolved]
  - Depression [Not Recovered/Not Resolved]
  - Anxiety [Unknown]
  - Thinking abnormal [Not Recovered/Not Resolved]
  - Panic attack [Unknown]
  - Dyspnoea [Unknown]
  - Sexual dysfunction [Unknown]
  - Dizziness [Unknown]
  - Hormone level abnormal [Unknown]
  - Dyspnoea [Unknown]
  - Gynaecomastia [Not Recovered/Not Resolved]

NARRATIVE: CASE EVENT DATE: 2005
